FAERS Safety Report 7956703-5 (Version None)
Quarter: 2011Q4

REPORT INFORMATION
  Report Type: 
  Country: None (occurrence: None)
  Receive Date: 20111205
  Receipt Date: 20111129
  Transmission Date: 20120403
  Serious: Yes (Hospitalization)
  Sender: FDA-Public Use
  Company Number: US-PFIZER INC-2011291523

PATIENT
  Sex: Female
  Weight: 63.95 kg

DRUGS (9)
  1. NEURONTIN [Suspect]
     Indication: INTERVERTEBRAL DISC DEGENERATION
  2. DAYPRO [Concomitant]
     Indication: RHEUMATOID ARTHRITIS
     Dosage: 600 MG, DAILY
  3. SOMA [Concomitant]
     Indication: SLEEP DISORDER
  4. NEURONTIN [Suspect]
     Indication: NEUROPATHY PERIPHERAL
     Dosage: 600 MG, 3X/DAY
     Dates: start: 20110601, end: 20111120
  5. CYMBALTA [Concomitant]
     Indication: DEPRESSION
     Dosage: 30 MG, 2X/DAY
  6. SOMA [Concomitant]
     Indication: OSTEOARTHRITIS
  7. SOMA [Concomitant]
     Indication: NEUROPATHY PERIPHERAL
     Dosage: 325 MG
  8. DAYPRO [Concomitant]
     Indication: OSTEOARTHRITIS
  9. SOMA [Concomitant]
     Indication: RHEUMATOID ARTHRITIS

REACTIONS (9)
  - ABASIA [None]
  - HYPOAESTHESIA [None]
  - EYE PAIN [None]
  - NERVOUS SYSTEM DISORDER [None]
  - HEADACHE [None]
  - CHEST PAIN [None]
  - DYSSTASIA [None]
  - ANXIETY [None]
  - DYSPNOEA [None]
